FAERS Safety Report 4983679-5 (Version None)
Quarter: 2006Q2

REPORT INFORMATION
  Report Type: 
  Country: None (occurrence: None)
  Receive Date: 20060425
  Receipt Date: 20060425
  Transmission Date: 20061013
  Serious: Yes (Other)
  Sender: FDA-Public Use
  Company Number: None

PATIENT
  Sex: Female
  Weight: 71.6683 kg

DRUGS (2)
  1. DURAGESIC-25 [Suspect]
     Indication: BACK PAIN
     Dosage: 1 PATCH UPPER TORSO UDQ72 HRS
     Route: 062
  2. DURAGESIC-25 [Suspect]
     Indication: COMPRESSION FRACTURE
     Dosage: 1 PATCH UPPER TORSO UDQ72 HRS
     Route: 062

REACTIONS (1)
  - CONFUSIONAL STATE [None]
